FAERS Safety Report 13650390 (Version 2)
Quarter: 2017Q3

REPORT INFORMATION
  Report Type: Report from Study
  Country: None (occurrence: US)
  Receive Date: 20170614
  Receipt Date: 20170911
  Transmission Date: 20171127
  Serious: Yes (Hospitalization, Other)
  Sender: FDA-Public Use
  Company Number: US-ABBVIE-17K-163-2003308-00

PATIENT
  Age: 59 Year
  Sex: Female
  Weight: 103.51 kg

DRUGS (1)
  1. HUMIRA [Suspect]
     Active Substance: ADALIMUMAB
     Indication: PSORIASIS
     Route: 058
     Dates: start: 201704

REACTIONS (2)
  - Joint abscess [Not Recovered/Not Resolved]
  - Inguinal mass [Unknown]

NARRATIVE: CASE EVENT DATE: 2017
